FAERS Safety Report 10089728 (Version 1)
Quarter: 2014Q2

REPORT INFORMATION
  Report Type: Spontaneous
  Country: AU (occurrence: None)
  Receive Date: 20140417
  Receipt Date: 20140417
  Transmission Date: 20141212
  Serious: Yes (Hospitalization)
  Sender: FDA-Public Use
  Company Number: AUR-APL-2012-00714

PATIENT
  Age: 45 Year
  Sex: Male

DRUGS (1)
  1. QUETIAPINE (QUETIAPINE) [Suspect]
     Indication: PRODUCT USED FOR UNKNOWN INDICATION

REACTIONS (5)
  - Pyrexia [None]
  - Treatment noncompliance [None]
  - Hyperhidrosis [None]
  - Psychotic disorder [None]
  - Disease recurrence [None]
